FAERS Safety Report 21509169 (Version 1)
Quarter: 2022Q4

REPORT INFORMATION
  Report Type: Report from Study
  Country: IT (occurrence: IT)
  Receive Date: 20221026
  Receipt Date: 20221026
  Transmission Date: 20230113
  Serious: Yes (Hospitalization, Other)
  Sender: FDA-Public Use
  Company Number: None

PATIENT
  Age: 17 Year
  Sex: Female
  Weight: 94 kg

DRUGS (20)
  1. IDARUBICIN [Suspect]
     Active Substance: IDARUBICIN
     Indication: Acute lymphocytic leukaemia
     Dosage: 12 MG ON  21JUL,  28/JUL, 05/AUG, 12AUG22
     Route: 042
     Dates: start: 20220721, end: 20220812
  2. METHOTREXATE (METHOTREXATE SODIUM) [Suspect]
     Active Substance: METHOTREXATE SODIUM
     Indication: Acute lymphocytic leukaemia
     Dosage: 12 MG
     Route: 037
     Dates: start: 20220720, end: 20220720
  3. METHOTREXATE (METHOTREXATE SODIUM) [Suspect]
     Active Substance: METHOTREXATE SODIUM
     Dosage: 12 MG
     Route: 037
     Dates: start: 20220810, end: 20220810
  4. METHOTREXATE (METHOTREXATE SODIUM) [Suspect]
     Active Substance: METHOTREXATE SODIUM
     Dosage: 12 MG
     Route: 037
     Dates: start: 20220907, end: 20220907
  5. VINCRISTINE [Suspect]
     Active Substance: VINCRISTINE
     Indication: Acute lymphocytic leukaemia
     Dosage: 2 MG
     Route: 042
     Dates: start: 20220721, end: 20220721
  6. VINCRISTINE [Suspect]
     Active Substance: VINCRISTINE
     Dosage: 2 MG
     Route: 042
     Dates: start: 20220728, end: 20220728
  7. VINCRISTINE [Suspect]
     Active Substance: VINCRISTINE
     Dosage: 2 MG
     Route: 042
     Dates: start: 20220805, end: 20220805
  8. VINCRISTINE [Suspect]
     Active Substance: VINCRISTINE
     Dosage: 2 MG
     Route: 042
     Dates: start: 20220812, end: 20220812
  9. CYTARABINE [Suspect]
     Active Substance: CYTARABINE
     Indication: Acute lymphocytic leukaemia
     Dosage: 20 MG
     Route: 037
     Dates: start: 20220720, end: 20220720
  10. CYTARABINE [Suspect]
     Active Substance: CYTARABINE
     Dosage: 20 UNK
     Dates: start: 20220810, end: 20220810
  11. CYTARABINE [Suspect]
     Active Substance: CYTARABINE
     Dosage: 20 UNK
     Dates: start: 20220907, end: 20220907
  12. ONCASPAR [Suspect]
     Active Substance: PEGASPARGASE
     Indication: Acute lymphocytic leukaemia
     Dosage: 2000 IU ON 21JUL AND 01AUG22
     Route: 042
     Dates: start: 20220721, end: 20220801
  13. THIOGUANINE ANHYDROUS [Suspect]
     Active Substance: THIOGUANINE ANHYDROUS
     Indication: Acute lymphocytic leukaemia
     Dosage: 40 MG, DAILY
     Route: 048
     Dates: start: 20220905, end: 20220916
  14. CYCLOPHOSPHAMIDE [Suspect]
     Active Substance: CYCLOPHOSPHAMIDE
     Indication: Acute lymphocytic leukaemia
     Dosage: 2000 MG, DAILY
     Route: 042
     Dates: start: 20220905, end: 20220905
  15. METHYLPREDNISOLONE ACETATE [Concomitant]
     Active Substance: METHYLPREDNISOLONE ACETATE
     Indication: Acute lymphocytic leukaemia
     Dosage: 10 MG
     Route: 037
     Dates: start: 20220720, end: 20220720
  16. METHYLPREDNISOLONE ACETATE [Concomitant]
     Active Substance: METHYLPREDNISOLONE ACETATE
     Dosage: 10 MG
     Route: 037
     Dates: start: 20220810, end: 20220810
  17. METHYLPREDNISOLONE ACETATE [Concomitant]
     Active Substance: METHYLPREDNISOLONE ACETATE
     Dosage: 10 MG
     Route: 037
     Dates: start: 20220907, end: 20220907
  18. DECADRON (DEXAMETHASONE SODIUM PHOSPHATE) [Concomitant]
     Active Substance: DEXAMETHASONE SODIUM PHOSPHATE
     Indication: Acute lymphocytic leukaemia
     Dosage: 12 MG, DAILY
     Route: 048
     Dates: start: 20220721, end: 20220804
  19. DECADRON (DEXAMETHASONE SODIUM PHOSPHATE) [Concomitant]
     Active Substance: DEXAMETHASONE SODIUM PHOSPHATE
     Dosage: 12 UNK
     Dates: start: 20220805, end: 20220807
  20. DECADRON (DEXAMETHASONE SODIUM PHOSPHATE) [Concomitant]
     Active Substance: DEXAMETHASONE SODIUM PHOSPHATE
     Dosage: 3 UNK
     Dates: start: 20220808, end: 20220810

REACTIONS (12)
  - Febrile neutropenia [Recovered/Resolved]
  - Hypogammaglobulinaemia [Unknown]
  - Pancytopenia [Recovering/Resolving]
  - Leukopenia [Not Recovered/Not Resolved]
  - Drug-induced liver injury [Recovered/Resolved]
  - Hypercholesterolaemia [Unknown]
  - Back pain [Recovered/Resolved]
  - Pain in extremity [Recovered/Resolved]
  - Hyperglycaemia [Recovered/Resolved]
  - Stomatitis [Recovered/Resolved]
  - Lipase increased [Unknown]
  - Anaemia [Not Recovered/Not Resolved]

NARRATIVE: CASE EVENT DATE: 20220726
